FAERS Safety Report 24547008 (Version 1)
Quarter: 2024Q4

REPORT INFORMATION
  Report Type: Spontaneous
  Country: CA (occurrence: CA)
  Receive Date: 20241025
  Receipt Date: 20241025
  Transmission Date: 20250114
  Serious: Yes (Other)
  Sender: AMGEN
  Company Number: CA-AMGEN-CANSP2024207299

PATIENT
  Age: 67 Year
  Sex: Female

DRUGS (13)
  1. PROLIA [Suspect]
     Active Substance: DENOSUMAB
     Indication: Product used for unknown indication
     Dosage: UNK
     Route: 058
  2. ARANESP [Concomitant]
     Active Substance: DARBEPOETIN ALFA
     Indication: Product used for unknown indication
     Route: 040
  3. ALTEPLASE [Concomitant]
     Active Substance: ALTEPLASE
     Route: 040
  4. CALCITRIOL [Concomitant]
     Active Substance: CALCITRIOL
  5. ESCITALOPRAM [Concomitant]
     Active Substance: ESCITALOPRAM OXALATE
  6. DALTEPARIN SODIUM [Concomitant]
     Active Substance: DALTEPARIN SODIUM
     Route: 040
  7. IRON SUCROSE [Concomitant]
     Active Substance: IRON SUCROSE
  8. KAYEXALATE [Concomitant]
     Active Substance: SODIUM POLYSTYRENE SULFONATE
  9. Replavite [Concomitant]
     Route: 048
  10. SODIUM CITRATE [Concomitant]
     Active Substance: SODIUM CITRATE
  11. TUMS [Concomitant]
     Active Substance: CALCIUM CARBONATE
  12. VITAMIN B12 [Concomitant]
     Active Substance: CYANOCOBALAMIN
  13. DENOSUMAB [Concomitant]
     Active Substance: DENOSUMAB
     Route: 058

REACTIONS (3)
  - Hypercalcaemia [Recovering/Resolving]
  - Hypocalcaemia [Recovering/Resolving]
  - Similar reaction on previous exposure to drug [Recovering/Resolving]
